FAERS Safety Report 6602722-0 (Version None)
Quarter: 2010Q1

REPORT INFORMATION
  Report Type: 
  Country: None (occurrence: None)
  Receive Date: 20100218
  Receipt Date: 20100205
  Transmission Date: 20100710
  Serious: Yes (Other)
  Sender: FDA-Public Use
  Company Number: 2010AL000921

PATIENT
  Age: 40 Year
  Sex: Female

DRUGS (10)
  1. DICLOFENAC SODIUM [Suspect]
     Dosage: 75 MG;QD
  2. DICLOFENAC SODIUM [Suspect]
  3. CITALOPRAM HYDROBROMIDE [Concomitant]
  4. ENBREL [Concomitant]
  5. DIHYDROCODEINE BITARTRATE INJ [Concomitant]
  6. FOLIC ACID [Concomitant]
  7. METHOTREXATE [Concomitant]
  8. CLOPIDOGREL [Concomitant]
  9. HYDROXYCHLOROQUINE SULFATE [Concomitant]
  10. ORAL CONTRACEPTIVE NOS [Concomitant]

REACTIONS (1)
  - GALACTORRHOEA [None]
